FAERS Safety Report 18847233 (Version 1)
Quarter: 2021Q1

REPORT INFORMATION
  Report Type: Spontaneous
  Country: CN (occurrence: CN)
  Receive Date: 20210204
  Receipt Date: 20210204
  Transmission Date: 20210419
  Serious: Yes (Hospitalization)
  Sender: FDA-Public Use
  Company Number: CN-ELI_LILLY_AND_COMPANY-CN202101006188

PATIENT
  Age: 62 Year
  Sex: Female
  Weight: 51.5 kg

DRUGS (3)
  1. METFORMIN [Concomitant]
     Active Substance: METFORMIN HYDROCHLORIDE
     Indication: PRODUCT USED FOR UNKNOWN INDICATION
  2. HUMALOG MIX75/25 [Suspect]
     Active Substance: INSULIN LISPRO
     Dosage: 14 INTERNATIONAL UNIT, DAILY (AT NIGHT)
     Route: 058
     Dates: start: 2008
  3. HUMALOG MIX75/25 [Suspect]
     Active Substance: INSULIN LISPRO
     Indication: DIABETES MELLITUS
     Dosage: 16 INTERNATIONAL UNIT, EACH MORNING
     Route: 058
     Dates: start: 2008

REACTIONS (4)
  - Product dose omission issue [Unknown]
  - Visual impairment [Unknown]
  - Eye disorder [Unknown]
  - Neuropathy peripheral [Unknown]

NARRATIVE: CASE EVENT DATE: 2019
